FAERS Safety Report 4303016-9 (Version None)
Quarter: 2004Q1

REPORT INFORMATION
  Report Type: 
  Country: None (occurrence: None)
  Receive Date: 20040126
  Receipt Date: 20030926
  Transmission Date: 20041129
  Serious: No
  Sender: FDA-Public Use
  Company Number: USA030948434

PATIENT
  Age: 42 Year
  Sex: Female

DRUGS (4)
  1. STRATTERA [Suspect]
     Indication: ATTENTION DEFICIT/HYPERACTIVITY DISORDER
     Dosage: 40 MG/IN THE MORNING
     Dates: start: 20030801
  2. ONE A DAY ACTIVE [Concomitant]
  3. OMEGA - 3 FISH OIL [Concomitant]
  4. CALCIUM [Concomitant]

REACTIONS (5)
  - AGGRESSION [None]
  - BLOOD PRESSURE DECREASED [None]
  - COMMUNICATION DISORDER [None]
  - HEART RATE INCREASED [None]
  - INSOMNIA [None]
